FAERS Safety Report 5811628-6 (Version None)
Quarter: 2008Q3

REPORT INFORMATION
  Report Type: 
  Country: None (occurrence: None)
  Receive Date: 20080716
  Receipt Date: 20080709
  Transmission Date: 20090109
  Serious: Yes (Other)
  Sender: FDA-Public Use
  Company Number: CN-ASTRAZENECA-2008AP05332

PATIENT
  Age: 28 Year
  Sex: Female

DRUGS (2)
  1. NAROPIN [Suspect]
     Indication: NERVE BLOCK
  2. LIDOCAINE [Suspect]
     Indication: NERVE BLOCK

REACTIONS (1)
  - NERVE INJURY [None]
